FAERS Safety Report 14567564 (Version 1)
Quarter: 2018Q1

REPORT INFORMATION
  Report Type: Spontaneous
  Country: GB (occurrence: KR)
  Receive Date: 20180223
  Receipt Date: 20180223
  Transmission Date: 20180509
  Serious: Yes (Other)
  Sender: FDA-Public Use
  Company Number: GB-MYLANLABS-2018M1011821

PATIENT
  Age: 38 Year
  Sex: Female

DRUGS (6)
  1. CISPLATIN. [Suspect]
     Active Substance: CISPLATIN
     Dosage: 75 MG/M2, CYCLIC AT THREE WEEK INTERVALS (THREE NEOADJUVANT CYCLES)
     Route: 065
  2. VINCRISTINE [Suspect]
     Active Substance: VINCRISTINE
     Indication: SQUAMOUS CELL CARCINOMA OF THE CERVIX
     Dosage: 1 MG/M2, CYCLIC AT THREE WEEK INTERVALS (THREE NEOADJUVANT CYCLES)
     Route: 065
  3. VINCRISTINE [Suspect]
     Active Substance: VINCRISTINE
     Dosage: 1 MG/M2, CYCLIC AT THREE WEEK INTERVALS (TWO ADJUVANT CYCLES)
     Route: 065
  4. CISPLATIN. [Suspect]
     Active Substance: CISPLATIN
     Indication: SQUAMOUS CELL CARCINOMA OF THE CERVIX
     Dosage: 75 MG/M2, CYCLIC AT THREE WEEK INTERVALS (TWO ADJUVANT CYCLES)
     Route: 065
  5. MITOMYCIN. [Suspect]
     Active Substance: MITOMYCIN
     Indication: SQUAMOUS CELL CARCINOMA OF THE CERVIX
     Dosage: 10 MG/M2, CYCLIC AT THREE WEEK INTERVALS (THREE NEOADJUVANT CYCLES)
     Route: 065
  6. MITOMYCIN. [Suspect]
     Active Substance: MITOMYCIN
     Dosage: 10 MG/M2, CYCLIC AT THREE WEEK INTERVALS (TWO ADJUVANT CYCLES)
     Route: 065

REACTIONS (1)
  - Haemolytic uraemic syndrome [Recovering/Resolving]

NARRATIVE: CASE EVENT DATE: 201212
